FAERS Safety Report 8763812 (Version 1)
Quarter: 2012Q4

REPORT INFORMATION
  Report Type: 
  Country: JP (occurrence: JP)
  Receive Date: 20120831
  Receipt Date: 20120831
  Transmission Date: 20130627
  Serious: Yes (Other)
  Sender: FDA-Public Use
  Company Number: JP-PFIZER INC-2012211357

PATIENT
  Sex: Male

DRUGS (2)
  1. AMLODIN [Suspect]
     Dosage: UNK
  2. OLMESARTAN MEDOXOMIL [Concomitant]
     Dosage: UNK

REACTIONS (1)
  - Parkinson^s disease [Unknown]
